FAERS Safety Report 11133446 (Version 1)
Quarter: 2015Q2

REPORT INFORMATION
  Report Type: Spontaneous
  Country: US (occurrence: US)
  Receive Date: 20150522
  Receipt Date: 20150522
  Transmission Date: 20150821
  Serious: No
  Sender: FDA-Public Use
  Company Number: US-ASTRAZENECA-2015SE44379

PATIENT
  Age: 61 Year
  Sex: Female
  Weight: 67.1 kg

DRUGS (7)
  1. SERTRALINE/ALPRAZOLAM [Concomitant]
     Indication: ANXIETY
     Dosage: AT NIGHT
  2. CALCIUM [Concomitant]
     Active Substance: CALCIUM
     Dosage: AT NIGHT
  3. BENICAR HCT [Concomitant]
     Active Substance: HYDROCHLOROTHIAZIDE\OLMESARTAN MEDOXOMIL
     Indication: BLOOD PRESSURE ABNORMAL
  4. METOPROLOL SUCCINATE. [Suspect]
     Active Substance: METOPROLOL SUCCINATE
     Indication: BLOOD PRESSURE ABNORMAL
     Route: 048
  5. METFORMIN [Concomitant]
     Active Substance: METFORMIN HYDROCHLORIDE
     Indication: BLOOD GLUCOSE INCREASED
  6. FISH OIL [Concomitant]
     Active Substance: FISH OIL
     Dosage: AT NIGHT
  7. CRESTOR [Suspect]
     Active Substance: ROSUVASTATIN CALCIUM
     Indication: BLOOD CHOLESTEROL ABNORMAL
     Dosage: DAILY
     Route: 048
     Dates: start: 2014

REACTIONS (2)
  - Blood cholesterol increased [Unknown]
  - Intentional product misuse [Unknown]

NARRATIVE: CASE EVENT DATE: 2015
